APPROVED DRUG PRODUCT: ADAPALENE AND BENZOYL PEROXIDE
Active Ingredient: ADAPALENE; BENZOYL PEROXIDE
Strength: 0.3%;2.5%
Dosage Form/Route: GEL;TOPICAL
Application: A212464 | Product #001 | TE Code: AB
Applicant: PADAGIS ISRAEL PHARMACEUTICALS LTD
Approved: May 31, 2022 | RLD: No | RS: No | Type: RX